FAERS Safety Report 9106203 (Version 2)
Quarter: 2013Q3

REPORT INFORMATION
  Report Type: Spontaneous
  Country: US (occurrence: US)
  Receive Date: 20130220
  Receipt Date: 20130816
  Transmission Date: 20140515
  Serious: Yes (Life-Threatening, Hospitalization)
  Sender: FDA-Public Use
  Company Number: US-US-EMD SERONO, INC.-7193224

PATIENT
  Age: 50 Year
  Sex: Female

DRUGS (4)
  1. REBIF [Suspect]
     Indication: MULTIPLE SCLEROSIS
     Route: 058
     Dates: start: 20080105, end: 201105
  2. REBIF [Suspect]
     Dates: start: 201105
  3. BACLOFEN [Suspect]
     Indication: ANXIETY
     Dates: start: 201105
  4. BACLOFEN [Suspect]

REACTIONS (6)
  - Adverse drug reaction [Unknown]
  - Anxiety [Recovered/Resolved]
  - Multiple sclerosis relapse [Recovered/Resolved]
  - Hypertension [Recovered/Resolved]
  - Muscle spasms [Recovered/Resolved]
  - Fatigue [Recovered/Resolved]
